FAERS Safety Report 7901562-X (Version None)
Quarter: 2011Q4

REPORT INFORMATION
  Report Type: 
  Country: None (occurrence: None)
  Receive Date: 20111108
  Receipt Date: 20111031
  Transmission Date: 20120403
  Serious: Yes (Other)
  Sender: FDA-Public Use
  Company Number: US-JNJFOC-20110611110

PATIENT
  Sex: Female

DRUGS (1)
  1. DOXORUBICIN HCL [Suspect]
     Indication: OVARIAN CANCER
     Route: 042
     Dates: start: 20110526, end: 20111004

REACTIONS (4)
  - BLOOD COUNT ABNORMAL [None]
  - OVARIAN CANCER [None]
  - OBSTRUCTION [None]
  - CLOSTRIDIAL INFECTION [None]
